FAERS Safety Report 6839118-2 (Version None)
Quarter: 2010Q2

REPORT INFORMATION
  Report Type: 
  Country: None (occurrence: None)
  Receive Date: 20100628
  Receipt Date: 20100518
  Transmission Date: 20101027
  Serious: Yes (Other)
  Sender: FDA-Public Use
  Company Number: SOLV00210003140

PATIENT
  Sex: Male

DRUGS (5)
  1. MARINOL [Suspect]
     Indication: DRUG USE FOR UNKNOWN INDICATION
  2. DASATINIB (DASATINIB) [Suspect]
     Indication: MUCOEPIDERMOID CARCINOMA
     Dosage: 35 MILLIGRAM(S) BID ORAL DAILY DOSE: 70 MILLIGRAM(S)
     Route: 048
     Dates: start: 20100218, end: 20100401
  3. OXYCODONE HCL [Suspect]
     Indication: DRUG USE FOR UNKNOWN INDICATION
  4. COMPAZINE [Suspect]
     Indication: DRUG USE FOR UNKNOWN INDICATION
  5. OXYCONTIN [Suspect]
     Indication: DRUG USE FOR UNKNOWN INDICATION

REACTIONS (1)
  - DECREASED APPETITE [None]
